FAERS Safety Report 6903251-7 (Version None)
Quarter: 2010Q3

REPORT INFORMATION
  Report Type: 
  Country: None (occurrence: None)
  Receive Date: 20100803
  Receipt Date: 20080711
  Transmission Date: 20110219
  Serious: Yes (Disabling, Other)
  Sender: FDA-Public Use
  Company Number: US-PFIZER INC-2008027960

PATIENT
  Sex: Male
  Weight: 115.9 kg

DRUGS (6)
  1. LYRICA [Suspect]
     Indication: PAIN
     Dates: start: 20070801
  2. CELEXA [Suspect]
     Dates: start: 20060101, end: 20080301
  3. TOPAMAX [Concomitant]
  4. ANDROGEL [Concomitant]
  5. NORVASC [Concomitant]
  6. OXYCODONE [Concomitant]

REACTIONS (6)
  - DISTURBANCE IN ATTENTION [None]
  - DIZZINESS [None]
  - ERECTILE DYSFUNCTION [None]
  - FATIGUE [None]
  - MEMORY IMPAIRMENT [None]
  - WEIGHT INCREASED [None]
